FAERS Safety Report 15488959 (Version 1)
Quarter: 2018Q4

REPORT INFORMATION
  Report Type: Spontaneous
  Country: US (occurrence: US)
  Receive Date: 20181011
  Receipt Date: 20181011
  Transmission Date: 20190205
  Serious: No
  Sender: FDA-Public Use
  Company Number: US-PERRIGO-18US004796

PATIENT
  Age: 25 Year
  Sex: Female

DRUGS (1)
  1. NICOTINE POLACRILEX [Suspect]
     Active Substance: NICOTINE
     Indication: SMOKING CESSATION THERAPY
     Dosage: 4 MG, 10 TO 20 TIMES DAILY
     Route: 002
     Dates: start: 201804

REACTIONS (1)
  - Tooth fracture [Recovered/Resolved]

NARRATIVE: CASE EVENT DATE: 20180414
